FAERS Safety Report 5642017-5 (Version None)
Quarter: 2008Q1

REPORT INFORMATION
  Report Type: 
  Country: None (occurrence: None)
  Receive Date: 20080227
  Receipt Date: 20080220
  Transmission Date: 20080703
  Serious: Yes (Disabling)
  Sender: FDA-Public Use
  Company Number: US-BAXTER-2008BH001541

PATIENT
  Age: 86 Year
  Sex: Female
  Weight: 89 kg

DRUGS (5)
  1. HEPARIN SODIUM [Suspect]
     Indication: THROMBOSIS PROPHYLAXIS
     Dosage: DOSE UNIT:UNKNOWN
     Route: 065
     Dates: start: 20071129, end: 20071129
  2. DYAZIDE [Concomitant]
     Indication: DRUG USE FOR UNKNOWN INDICATION
     Dosage: DOSE UNIT:UNKNOWN
     Route: 065
     Dates: start: 19880101
  3. ATENOLOL [Concomitant]
     Indication: OEDEMA
     Dosage: DOSE UNIT:UNKNOWN
     Route: 065
     Dates: start: 19880101
  4. LIPITOR [Concomitant]
     Indication: BLOOD CHOLESTEROL
     Dosage: DOSE UNIT:UNKNOWN
     Route: 065
     Dates: start: 19880101
  5. COUMADIN [Concomitant]
     Indication: ANTICOAGULANT THERAPY
     Dosage: DOSE UNIT:UNKNOWN
     Route: 065

REACTIONS (8)
  - BEDRIDDEN [None]
  - DEEP VEIN THROMBOSIS [None]
  - GASTRIC ULCER HAEMORRHAGE [None]
  - HAEMATOCHEZIA [None]
  - LABORATORY TEST ABNORMAL [None]
  - OEDEMA PERIPHERAL [None]
  - PLATELET COUNT DECREASED [None]
  - SKIN DISCOLOURATION [None]
